FAERS Safety Report 9349365 (Version 2)
Quarter: 2014Q1

REPORT INFORMATION
  Report Type: Spontaneous
  Country: TR (occurrence: TR)
  Receive Date: 20130614
  Receipt Date: 20140115
  Transmission Date: 20141002
  Serious: Yes (Death, Hospitalization)
  Sender: FDA-Public Use
  Company Number: TR-BRISTOL-MYERS SQUIBB COMPANY-18990044

PATIENT
  Age: 60 Year
  Sex: Male
  Weight: 93 kg

DRUGS (10)
  1. IPILIMUMAB [Suspect]
     Indication: METASTATIC MALIGNANT MELANOMA
     Dosage: TOTAL:280MG
     Route: 042
     Dates: start: 20130504
  2. ZOFER [Concomitant]
     Indication: PREMEDICATION
     Route: 042
     Dates: start: 20130504, end: 20130504
  3. VOLTAREN [Concomitant]
     Dosage: SR,TABS
     Route: 048
     Dates: start: 20130511
  4. ALLOPURINOL [Concomitant]
     Route: 048
     Dates: start: 20130502
  5. CLEXANE [Concomitant]
     Route: 058
     Dates: start: 20130413
  6. ACETAMINOPHEN [Concomitant]
     Route: 062
     Dates: start: 20130511
  7. PANTOPRAZOLE [Concomitant]
     Route: 048
     Dates: start: 20130511
  8. METOCLOPRAMIDE [Concomitant]
     Dosage: TAB
     Route: 048
     Dates: start: 20130511
  9. CONTRAMAL [Concomitant]
     Dosage: CAPS,TRAMADOL AMP,IV,09-09MAY13
     Route: 048
     Dates: start: 20130502, end: 20130510
  10. DUPHALAC [Concomitant]
     Dosage: SUSP
     Route: 048
     Dates: start: 20130511

REACTIONS (1)
  - Tumour lysis syndrome [Fatal]
